FAERS Safety Report 12179807 (Version 2)
Quarter: 2016Q1

REPORT INFORMATION
  Report Type: Spontaneous
  Country: US (occurrence: US)
  Receive Date: 20160315
  Receipt Date: 20160329
  Transmission Date: 20160526
  Serious: Yes (Other)
  Sender: FDA-Public Use
  Company Number: US-ENDO PHARMACEUTICALS INC.-2016-001379

PATIENT
  Sex: Female
  Weight: 59.93 kg

DRUGS (7)
  1. METOPROLOL. [Concomitant]
     Active Substance: METOPROLOL
     Indication: BLOOD PRESSURE MEASUREMENT
     Route: 065
  2. ARIMIDEX [Concomitant]
     Active Substance: ANASTROZOLE
     Indication: NEOPLASM MALIGNANT
     Route: 065
  3. PROCARDIA [Suspect]
     Active Substance: NIFEDIPINE
     Route: 065
  4. PROCARDIA [Suspect]
     Active Substance: NIFEDIPINE
     Indication: PRODUCT USED FOR UNKNOWN INDICATION
     Route: 065
  5. PROCARDIA [Suspect]
     Active Substance: NIFEDIPINE
     Route: 065
  6. HYDROCHLOROTHIAZIDE. [Concomitant]
     Active Substance: HYDROCHLOROTHIAZIDE
     Indication: CARDIAC DISORDER
     Route: 065
  7. LISINOPRIL TABLETS 20MG [Suspect]
     Active Substance: LISINOPRIL
     Indication: BLOOD PRESSURE MEASUREMENT
     Route: 065

REACTIONS (2)
  - Blood pressure fluctuation [Unknown]
  - Cough [Unknown]
